FAERS Safety Report 24313513 (Version 1)
Quarter: 2024Q3

REPORT INFORMATION
  Report Type: Spontaneous
  Country: US (occurrence: US)
  Receive Date: 20240912
  Receipt Date: 20240912
  Transmission Date: 20241016
  Serious: Yes (Other)
  Sender: GLAXOSMITHKLINE
  Company Number: US-GLAXOSMITHKLINE-US2024GSK111987

PATIENT

DRUGS (7)
  1. BUPROPION [Suspect]
     Active Substance: BUPROPION
     Indication: Depression
     Dosage: 150 MG, QD
  2. BUPROPION [Suspect]
     Active Substance: BUPROPION
     Indication: Anxiety
  3. RITUXIMAB [Suspect]
     Active Substance: RITUXIMAB
     Indication: Rheumatoid arthritis
     Dosage: UNK
  4. APIXABAN [Suspect]
     Active Substance: APIXABAN
     Indication: Pulmonary embolism
     Dosage: 5 MG, BID
  5. REMDESIVIR [Suspect]
     Active Substance: REMDESIVIR
     Indication: COVID-19
     Dosage: UNK
  6. PANTOPRAZOLE [Suspect]
     Active Substance: PANTOPRAZOLE
     Indication: Gastrooesophageal reflux disease
     Dosage: 40 MG, QD
  7. PREDNISONE [Suspect]
     Active Substance: PREDNISONE
     Indication: COVID-19
     Dosage: 12.5 MG, QD

REACTIONS (16)
  - Acute generalised exanthematous pustulosis [Unknown]
  - Stevens-Johnson syndrome [Unknown]
  - Rash [Unknown]
  - Tachycardia [Unknown]
  - Hypertension [Unknown]
  - Erythema [Unknown]
  - Macule [Unknown]
  - Papule [Unknown]
  - Blister [Unknown]
  - Pustule [Unknown]
  - Skin exfoliation [Unknown]
  - Rash erythematous [Unknown]
  - Nikolsky^s sign [Unknown]
  - Dermatitis psoriasiform [Unknown]
  - Pallor [Unknown]
  - Scab [Unknown]
